FAERS Safety Report 9380544 (Version 5)
Quarter: 2013Q4

REPORT INFORMATION
  Report Type: Report from Study
  Country: US (occurrence: US)
  Receive Date: 20130702
  Receipt Date: 20131119
  Transmission Date: 20140711
  Serious: Yes (Hospitalization, Other)
  Sender: FDA-Public Use
  Company Number: US-ACTELION-A-US2013-84939

PATIENT
  Age: 59 Year
  Sex: Female

DRUGS (21)
  1. TRACLEER [Suspect]
     Indication: PORTOPULMONARY HYPERTENSION
     Dosage: 125 MG, BID
     Route: 048
     Dates: start: 2012
  2. TRACLEER [Suspect]
     Dosage: 62.5 MG, BID
     Route: 048
     Dates: start: 2012
  3. HEPARIN [Suspect]
  4. FUROSEMIDE [Concomitant]
     Dosage: UNK, BID
  5. VITAMINS [Concomitant]
  6. CIALIS [Concomitant]
     Dosage: TABS II QD
  7. SUMATRIPTAN [Concomitant]
     Dosage: 100 MG, PRN
  8. OMEPRAZOLE [Concomitant]
     Dosage: 20 MG, BID
  9. ALDACTONE [Concomitant]
     Dosage: 100 MG, BID
  10. FERROUS SULFATE [Concomitant]
     Dosage: 5 GR, UNK
  11. LACTULOSE [Concomitant]
     Dosage: 15 ML, BID
  12. PROCHLORPERAZINE [Concomitant]
     Dosage: 5 MG, PRN
  13. TRAZODONE [Concomitant]
     Dosage: 50 MG, QD
  14. FENTANYL [Concomitant]
     Dosage: 50 MG, Q3D
  15. CALTRATE [Concomitant]
     Dosage: TAB I QD
  16. CENTRUM [Concomitant]
     Dosage: TAB I QD
  17. MAGNESIUM [Concomitant]
     Dosage: TABS I QD
  18. SELENIUM [Concomitant]
     Dosage: TABS I QD
  19. VITAMIN C [Concomitant]
     Dosage: 1000 MG BID
  20. DELESTROGEN [Concomitant]
     Dosage: 10 MG 1/MO
  21. NASONEX [Concomitant]
     Dosage: 1 SPRAY, QD

REACTIONS (17)
  - Thrombosis [Unknown]
  - Fluid retention [Recovering/Resolving]
  - Blindness [Recovering/Resolving]
  - Abdominal distension [Unknown]
  - Local swelling [Unknown]
  - Influenza [Unknown]
  - Body temperature increased [Unknown]
  - Vomiting [Unknown]
  - Diarrhoea [Unknown]
  - Drug withdrawal syndrome [Unknown]
  - Memory impairment [Unknown]
  - Anaemia [Recovering/Resolving]
  - Transfusion [Recovering/Resolving]
  - Malaise [Unknown]
  - Weight increased [Recovered/Resolved]
  - Migraine [Unknown]
  - Swelling [Recovered/Resolved]
